FAERS Safety Report 5479270-7 (Version None)
Quarter: 2007Q4

REPORT INFORMATION
  Report Type: 
  Country: None (occurrence: None)
  Receive Date: 20071003
  Receipt Date: 20070918
  Transmission Date: 20080405
  Serious: Yes (Death)
  Sender: FDA-Public Use
  Company Number: 2007S1008369

PATIENT
  Age: 32 Year
  Sex: Male
  Weight: 120.6568 kg

DRUGS (3)
  1. FENTANYL TRANSDERMAL SYSTEM [Suspect]
     Dosage: 75 UG/HR; TRANSDERMAL
     Route: 062
     Dates: end: 20070629
  2. XANAX [Suspect]
     Dosage: ORAL
     Route: 048
  3. PERCOCET [Suspect]
     Dosage: ORAL
     Route: 048

REACTIONS (5)
  - ACCIDENTAL DEATH [None]
  - ALCOHOL POISONING [None]
  - DRUG TOXICITY [None]
  - SOMNOLENCE [None]
  - UNRESPONSIVE TO STIMULI [None]
